FAERS Safety Report 18184359 (Version 1)
Quarter: 2020Q3

REPORT INFORMATION
  Report Type: Spontaneous
  Country: FR (occurrence: FR)
  Receive Date: 20200824
  Receipt Date: 20200824
  Transmission Date: 20201103
  Serious: Yes (Hospitalization)
  Sender: FDA-Public Use
  Company Number: FR-B.I. PHARMACEUTICALS,INC./RIDGEFIELD-2020-12-043438

PATIENT
  Age: 42 Year
  Sex: Male

DRUGS (3)
  1. CATAPRESSAN [Suspect]
     Active Substance: CLONIDINE
     Indication: HYPERTENSIVE CRISIS
     Dosage: FORM STRENGTH: 0,15 MG/ML
     Route: 042
     Dates: start: 20200710, end: 20200710
  2. NICARDIPINE AGUETTANT [Suspect]
     Active Substance: NICARDIPINE
     Indication: HYPERTENSIVE CRISIS
     Dosage: FORM STRENGTH: 10MG/10ML
     Route: 042
     Dates: start: 20200710, end: 20200710
  3. URAPIDIL MYLAN [Suspect]
     Active Substance: URAPIDIL
     Indication: HYPERTENSIVE CRISIS
     Route: 042
     Dates: start: 20200710, end: 20200710

REACTIONS (1)
  - Priapism [Recovered/Resolved with Sequelae]

NARRATIVE: CASE EVENT DATE: 20200711
